FAERS Safety Report 8449791-3 (Version None)
Quarter: 2012Q2

REPORT INFORMATION
  Report Type: 
  Country: None (occurrence: None)
  Receive Date: 20120620
  Receipt Date: 20120608
  Transmission Date: 20120825
  Serious: Yes (Other)
  Sender: FDA-Public Use
  Company Number: JP-VERTEX PHARMACEUTICALS INC.-AE-2012-000005

PATIENT
  Age: 66 Year
  Sex: Male

DRUGS (7)
  1. RIBAVIRIN [Concomitant]
     Indication: HEPATITIS C
     Route: 048
     Dates: start: 20111221, end: 20111223
  2. VERAPAMIL HCL [Concomitant]
     Route: 048
     Dates: end: 20111223
  3. PREDNISOLONE [Concomitant]
     Route: 048
     Dates: end: 20111223
  4. TELAVIC (TELAPREVIR) [Suspect]
     Indication: HEPATITIS C
     Route: 048
     Dates: start: 20111221, end: 20111223
  5. FAMOTIDINE [Concomitant]
     Route: 048
     Dates: end: 20111223
  6. PEGINTERFERON ALFA-2B [Concomitant]
     Indication: HEPATITIS C
     Route: 058
     Dates: start: 20111221, end: 20111223
  7. ASPIRIN [Concomitant]
     Route: 048
     Dates: end: 20111223

REACTIONS (11)
  - DEPRESSED LEVEL OF CONSCIOUSNESS [None]
  - METABOLIC ACIDOSIS [None]
  - HYPOTHERMIA [None]
  - ACIDOSIS [None]
  - ILEAL PERFORATION [None]
  - MALAISE [None]
  - HAEMOGLOBIN DECREASED [None]
  - VITAMIN B1 DEFICIENCY [None]
  - MESENTERIC VEIN THROMBOSIS [None]
  - INCISIONAL HERNIA [None]
  - INFECTIOUS PERITONITIS [None]
